FAERS Safety Report 9788069 (Version 6)
Quarter: 2014Q1

REPORT INFORMATION
  Report Type: Spontaneous
  Country: BR (occurrence: BR)
  Receive Date: 20131230
  Receipt Date: 20140331
  Transmission Date: 20141002
  Serious: Yes (Hospitalization, Other)
  Sender: FDA-Public Use
  Company Number: BR-JNJFOC-20131215552

PATIENT
  Age: 39 Year
  Sex: Female
  Weight: 92 kg

DRUGS (3)
  1. XARELTO [Suspect]
     Indication: EMBOLISM VENOUS
     Route: 048
     Dates: start: 20130205
  2. XARELTO [Suspect]
     Indication: PULMONARY EMBOLISM
     Route: 048
     Dates: start: 20130205
  3. MIRENA [Suspect]
     Indication: CONTRACEPTION
     Dosage: CONT
     Route: 015
     Dates: start: 20100611, end: 20140207

REACTIONS (22)
  - Urinary tract infection [Not Recovered/Not Resolved]
  - Menorrhagia [Recovered/Resolved]
  - Uterine haemorrhage [Unknown]
  - Vaginal discharge [Unknown]
  - Asthenia [Not Recovered/Not Resolved]
  - Blood pressure inadequately controlled [Recovered/Resolved]
  - Insomnia [Unknown]
  - Depressive symptom [Not Recovered/Not Resolved]
  - Swelling [Recovered/Resolved]
  - Hirsutism [Not Recovered/Not Resolved]
  - Acne [Not Recovered/Not Resolved]
  - Amenorrhoea [Not Recovered/Not Resolved]
  - Varicose vein operation [Recovered/Resolved]
  - Amenorrhoea [Recovered/Resolved]
  - Heart rate normal [Recovered/Resolved]
  - Vaginal haemorrhage [Recovered/Resolved]
  - Ocular hyperaemia [Recovered/Resolved]
  - Nephrolithiasis [Recovered/Resolved]
  - Malaise [Recovered/Resolved]
  - Pulmonary embolism [Not Recovered/Not Resolved]
  - Metrorrhagia [Recovered/Resolved]
  - Metrorrhagia [Recovered/Resolved]
